FAERS Safety Report 6351428-4 (Version None)
Quarter: 2009Q3

REPORT INFORMATION
  Report Type: 
  Country: None (occurrence: None)
  Receive Date: 20090912
  Receipt Date: 20090622
  Transmission Date: 20100115
  Serious: No
  Sender: FDA-Public Use
  Company Number: US-ABBOTT-07P-163-0417173-00

PATIENT
  Sex: Female
  Weight: 136.36 kg

DRUGS (2)
  1. HUMIRA [Suspect]
     Indication: CROHN'S DISEASE
     Dosage: 160MG LOADING DOSE
     Route: 058
     Dates: start: 20070912, end: 20070912
  2. HUMIRA [Suspect]
     Dosage: SCHEDULED FOR 80 MG DOSE
     Dates: start: 20070926

REACTIONS (6)
  - DRY MOUTH [None]
  - DRY THROAT [None]
  - INCORRECT DOSE ADMINISTERED [None]
  - INFLUENZA LIKE ILLNESS [None]
  - INJECTION SITE EXTRAVASATION [None]
  - WRONG TECHNIQUE IN DRUG USAGE PROCESS [None]
